FAERS Safety Report 6233369-6 (Version None)
Quarter: 2009Q2

REPORT INFORMATION
  Report Type: 
  Country: None (occurrence: None)
  Receive Date: 20090616
  Receipt Date: 20090616
  Transmission Date: 20091009
  Serious: Yes (Hospitalization)
  Sender: FDA-Public Use
  Company Number: None

PATIENT
  Sex: Female
  Weight: 95.2554 kg

DRUGS (1)
  1. ULTRAM ER [Suspect]
     Indication: PAIN IN EXTREMITY
     Dates: start: 20090606, end: 20090606

REACTIONS (5)
  - APHASIA [None]
  - DIZZINESS [None]
  - IMMOBILE [None]
  - NAUSEA [None]
  - OVERDOSE [None]
